FAERS Safety Report 6256639-4 (Version None)
Quarter: 2009Q3

REPORT INFORMATION
  Report Type: 
  Country: None (occurrence: None)
  Receive Date: 20090706
  Receipt Date: 20090625
  Transmission Date: 20100115
  Serious: Yes (Hospitalization)
  Sender: FDA-Public Use
  Company Number: BR-JNJFOC-20090500103

PATIENT
  Sex: Male
  Weight: 72 kg

DRUGS (7)
  1. REMICADE [Suspect]
     Route: 042
  2. REMICADE [Suspect]
     Dosage: TREATMENT WAS INCREASED TO AN UNSPECIFIED DOSAGE
     Route: 042
  3. REMICADE [Suspect]
     Indication: RHEUMATOID ARTHRITIS
     Dosage: ON TREATMENT FOR TWO YEARS
     Route: 042
  4. METHOTREXATE [Concomitant]
  5. PREDNISONE [Concomitant]
     Indication: RHEUMATOID ARTHRITIS
     Route: 048
  6. CORTICOSTEROIDS [Concomitant]
  7. AZATHIOPRINE [Concomitant]
     Indication: RHEUMATOID ARTHRITIS
     Route: 048

REACTIONS (8)
  - CONFUSIONAL STATE [None]
  - DIPLOPIA [None]
  - DRUG INEFFECTIVE [None]
  - HEAD DISCOMFORT [None]
  - HYPOAESTHESIA [None]
  - JOINT STIFFNESS [None]
  - MENTAL DISORDER [None]
  - RHEUMATOID ARTHRITIS [None]
